FAERS Safety Report 14188438 (Version 1)
Quarter: 2017Q4

REPORT INFORMATION
  Report Type: Spontaneous
  Country: US (occurrence: US)
  Receive Date: 20171114
  Receipt Date: 20171114
  Transmission Date: 20180321
  Serious: No
  Sender: FDA-Public Use
  Company Number: US-BAUSCH-BL-2016-027474

PATIENT
  Age: 68 Year
  Sex: Male

DRUGS (1)
  1. APRISO [Suspect]
     Active Substance: MESALAMINE
     Indication: COLITIS ULCERATIVE
     Dosage: 4 TABLETS ONCE DAILY IN THE MORNING.
     Route: 048
     Dates: start: 20160923

REACTIONS (5)
  - Muscle spasms [Unknown]
  - Nasal dryness [Recovering/Resolving]
  - Diarrhoea [Unknown]
  - Influenza like illness [Recovering/Resolving]
  - Rhinorrhoea [Recovering/Resolving]

NARRATIVE: CASE EVENT DATE: 2016
